FAERS Safety Report 8037736-X (Version None)
Quarter: 2012Q1

REPORT INFORMATION
  Report Type: 
  Country: None (occurrence: None)
  Receive Date: 20120111
  Receipt Date: 20120104
  Transmission Date: 20120608
  Serious: Yes (Other)
  Sender: FDA-Public Use
  Company Number: US-BAYER-200941244NA

PATIENT
  Age: 61 Year
  Sex: Male
  Weight: 90.4 kg

DRUGS (22)
  1. HYZAAR [Concomitant]
     Dosage: ONCE DAILY
     Route: 048
  2. ATENOLOL [Concomitant]
     Dosage: 50 MG, DAILY
     Route: 048
  3. ACETYLSALICYLIC ACID SRT [Concomitant]
     Dosage: 325 MG, QD
     Route: 048
  4. LORCET-HD [Concomitant]
  5. LIPITOR [Concomitant]
     Dosage: 20 MG, DAILY
     Route: 048
  6. PLASMA [Concomitant]
  7. PERCOCET [Concomitant]
     Dosage: ONE 4 TIMES DAILY
  8. LASIX [Concomitant]
     Dosage: UNK
     Dates: start: 20031015
  9. HEPARIN [Concomitant]
     Dosage: UNK
     Dates: start: 20031015
  10. ALPRAZOLAM [Concomitant]
     Dosage: 0.5 MG EVERY 4 HOURS AS NEEDED
     Route: 048
  11. PANCURONIUM [Concomitant]
     Dosage: UNK
     Dates: start: 20031015
  12. INSULIN [Concomitant]
  13. CRYOPRECIPITATES [Concomitant]
     Dosage: 1 U, UNK
     Route: 042
  14. TRASYLOL [Suspect]
     Indication: AORTIC VALVE REPLACEMENT
     Dosage: 200 ML, UNK
     Route: 042
     Dates: start: 20031015, end: 20031015
  15. PROTAMINE SULFATE [Concomitant]
     Dosage: UNK
     Dates: start: 20031015
  16. PLATELETS [Concomitant]
     Dosage: 10 U, UNK
     Route: 042
  17. OMNIPAQUE 140 [Concomitant]
     Indication: CATHETERISATION CARDIAC
     Dosage: UNK
     Dates: start: 20031014
  18. PROZAC [Concomitant]
     Dosage: 20 MG, TID
     Route: 048
  19. AMBIEN [Concomitant]
     Dosage: 10 MG, UNK
  20. OXYCODONE HCL AND ACETAMINOPHEN [Concomitant]
     Dosage: ONE EVERY 6 HOURS
  21. ANCEF [Concomitant]
     Dosage: 1 G, UNK
     Dates: start: 20031015
  22. RED BLOOD CELLS [Concomitant]
     Dosage: 5 U, UNK
     Route: 042

REACTIONS (12)
  - PAIN [None]
  - RENAL FAILURE [None]
  - RENAL INJURY [None]
  - ANXIETY [None]
  - CARDIAC ARREST [None]
  - RENAL IMPAIRMENT [None]
  - UNEVALUABLE EVENT [None]
  - STRESS [None]
  - FEAR [None]
  - INJURY [None]
  - ANHEDONIA [None]
  - EMOTIONAL DISTRESS [None]
